FAERS Safety Report 4294046-4 (Version None)
Quarter: 2004Q1

REPORT INFORMATION
  Report Type: 
  Country: None (occurrence: None)
  Receive Date: 20040211
  Receipt Date: 20040126
  Transmission Date: 20041129
  Serious: Yes (Hospitalization, Other)
  Sender: FDA-Public Use
  Company Number: 225929

PATIENT
  Age: 7 Year
  Sex: Male
  Weight: 17.8 kg

DRUGS (2)
  1. NORDITROPIN SIMPLEXX(SOMATROPIN) SOLUTION FOR INJECTION, 3.3MG/ML [Suspect]
     Indication: GROWTH HORMONE DEFICIENCY
     Dosage: 0.6 MG, SUBCUTANEOUS
     Route: 058
     Dates: start: 20010126
  2. LEVAXIN (LEVOTHYROXINE SODIUM) [Concomitant]

REACTIONS (2)
  - NEPHROTIC SYNDROME [None]
  - THYROXINE DECREASED [None]
